FAERS Safety Report 19732196 (Version 1)
Quarter: 2021Q3

REPORT INFORMATION
  Report Type: Report from Study
  Country: US (occurrence: US)
  Receive Date: 20210820
  Receipt Date: 20210820
  Transmission Date: 20211014
  Serious: Yes (Disabling, Other)
  Sender: FDA-Public Use
  Company Number: US-REGENERON PHARMACEUTICALS, INC.-2021-76872

PATIENT

DRUGS (1)
  1. EYLEA [Suspect]
     Active Substance: AFLIBERCEPT
     Indication: CHRONIC HEPATITIS
     Dosage: 2 MG/0.05 ML SDV (SINGLE DOSE VIAL), LEFT EYE Q6W
     Route: 031

REACTIONS (2)
  - Blindness transient [Recovered/Resolved]
  - Off label use [Unknown]
